FAERS Safety Report 10173760 (Version 2)
Quarter: 2014Q2

REPORT INFORMATION
  Report Type: Spontaneous
  Country: BR (occurrence: BR)
  Receive Date: 20140515
  Receipt Date: 20140515
  Transmission Date: 20141212
  Serious: Yes (Other)
  Sender: FDA-Public Use
  Company Number: BR-ELI_LILLY_AND_COMPANY-BR201312008542

PATIENT
  Sex: Female
  Weight: 80 kg

DRUGS (3)
  1. HUMULIN N [Suspect]
     Indication: GESTATIONAL DIABETES
     Dosage: 8 IU, BID
     Route: 058
     Dates: start: 20131226
  2. HUMULIN N [Suspect]
     Dosage: 4 IU, QD
     Route: 058
     Dates: start: 20131220
  3. POLIVITAMINICO [Concomitant]
     Indication: PRODUCT USED FOR UNKNOWN INDICATION
     Dosage: UNK, UNKNOWN
     Route: 065

REACTIONS (4)
  - Diabetes mellitus inadequate control [Unknown]
  - Exposure during pregnancy [Unknown]
  - Foetal monitoring abnormal [Recovered/Resolved]
  - Ultrasound Doppler abnormal [Recovered/Resolved]
